FAERS Safety Report 4694982-0 (Version None)
Quarter: 2005Q2

REPORT INFORMATION
  Report Type: 
  Country: None (occurrence: None)
  Receive Date: 20050617
  Receipt Date: 20041122
  Transmission Date: 20051028
  Serious: Yes (Other)
  Sender: FDA-Public Use
  Company Number: US-2004-035565

PATIENT
  Age: 63 Year
  Sex: Female

DRUGS (5)
  1. FLUDARA [Suspect]
     Indication: NON-HODGKIN'S LYMPHOMA
     Dates: start: 20020201, end: 20020901
  2. CYTOXAN [Concomitant]
  3. RITUXAN [Concomitant]
  4. ARANESP [Concomitant]
  5. NEUPOGEN [Concomitant]

REACTIONS (1)
  - BONE MARROW DEPRESSION [None]
